FAERS Safety Report 7953526-8 (Version None)
Quarter: 2011Q4

REPORT INFORMATION
  Report Type: 
  Country: None (occurrence: None)
  Receive Date: 20111202
  Receipt Date: 20111128
  Transmission Date: 20120403
  Serious: Yes (Other)
  Sender: FDA-Public Use
  Company Number: US-ACCORD-011511

PATIENT
  Age: 12 Year
  Sex: Female

DRUGS (1)
  1. TACROLIMUS [Suspect]
     Indication: IMMUNOSUPPRESSION

REACTIONS (4)
  - AUTOIMMUNE LYMPHOPROLIFERATIVE SYNDROME [None]
  - EVANS SYNDROME [None]
  - ANAEMIA HAEMOLYTIC AUTOIMMUNE [None]
  - IDIOPATHIC THROMBOCYTOPENIC PURPURA [None]
